FAERS Safety Report 6546000-7 (Version None)
Quarter: 2010Q1

REPORT INFORMATION
  Report Type: 
  Country: None (occurrence: None)
  Receive Date: 20100121
  Receipt Date: 20100121
  Transmission Date: 20100710
  Serious: Yes (Life-Threatening, Hospitalization)
  Sender: FDA-Public Use
  Company Number: None

PATIENT
  Age: 63 Year
  Sex: Male
  Weight: 86.1834 kg

DRUGS (4)
  1. TOPIRAMATE [Suspect]
     Indication: CONVULSION
     Dosage: TAKE 1 TABLET TWICE DAILY
     Dates: start: 20090401, end: 20091014
  2. BONIVA [Concomitant]
  3. CALCIUM [Concomitant]
  4. BABY ASPIRIN [Concomitant]

REACTIONS (4)
  - BRAIN NEOPLASM [None]
  - CONDITION AGGRAVATED [None]
  - CONVULSION [None]
  - PRODUCT SUBSTITUTION ISSUE [None]
